FAERS Safety Report 6048954-4 (Version None)
Quarter: 2009Q1

REPORT INFORMATION
  Report Type: 
  Country: None (occurrence: None)
  Receive Date: 20090123
  Receipt Date: 20090112
  Transmission Date: 20090719
  Serious: Yes (Hospitalization, Other)
  Sender: FDA-Public Use
  Company Number: US-ELI_LILLY_AND_COMPANY-US200812002358

PATIENT
  Sex: Male

DRUGS (13)
  1. BYETTA [Suspect]
     Dosage: UNK, UNKNOWN
     Route: 065
     Dates: start: 20070615, end: 20070804
  2. BYETTA [Suspect]
     Dosage: UNK, UNKNOWN
     Dates: start: 20080215, end: 20080319
  3. PAXIL [Concomitant]
     Dosage: 75 MG, DAILY (1/D)
  4. NEXIUM [Concomitant]
     Dosage: 40 MG, DAILY (1/D)
  5. ACTOS [Concomitant]
     Dosage: 30 MG, DAILY (1/D)
  6. ASPIRIN [Concomitant]
     Dosage: 81 MG, DAILY (1/D)
  7. MONOPRIL [Concomitant]
     Dosage: 40 MG, DAILY (1/D)
  8. VYTORIN [Concomitant]
     Dosage: UNK, DAILY (1/D)
  9. INSULIN [Concomitant]
     Dosage: UNK, AS NEEDED
  10. LANTUS [Concomitant]
     Dosage: 50 U, EACH EVENING
  11. ZOLPIDEM [Concomitant]
     Dosage: 10 MG, EACH EVENING
  12. TRICOR [Concomitant]
     Dosage: 145 MG, DAILY (1/D)
  13. TENORETIC 100 [Concomitant]

REACTIONS (6)
  - BOWEL MOVEMENT IRREGULARITY [None]
  - CHOLELITHIASIS [None]
  - CHRONIC OBSTRUCTIVE PULMONARY DISEASE [None]
  - LIVER FUNCTION TEST ABNORMAL [None]
  - PANCREATITIS [None]
  - PANCREATITIS ACUTE [None]
